FAERS Safety Report 7436978-1 (Version None)
Quarter: 2011Q2

REPORT INFORMATION
  Report Type: 
  Country: None (occurrence: None)
  Receive Date: 20110426
  Receipt Date: 20110418
  Transmission Date: 20111010
  Serious: No
  Sender: FDA-Public Use
  Company Number: US-PFIZER INC-2011084860

PATIENT
  Sex: Female
  Weight: 44 kg

DRUGS (1)
  1. PREMARIN [Suspect]
     Indication: VULVOVAGINAL DRYNESS
     Dosage: 1 G, DAILY
     Route: 067
     Dates: start: 20110412, end: 20110401

REACTIONS (3)
  - ABDOMINAL PAIN [None]
  - CERVIX DISORDER [None]
  - ABDOMINAL DISTENSION [None]
